FAERS Safety Report 4709785-8 (Version None)
Quarter: 2005Q3

REPORT INFORMATION
  Report Type: 
  Country: None (occurrence: None)
  Receive Date: 20050708
  Receipt Date: 20050629
  Transmission Date: 20060218
  Serious: Yes (Other)
  Sender: FDA-Public Use
  Company Number: PHBS2005CA09595

PATIENT
  Sex: Female

DRUGS (2)
  1. QUESTRAN [Concomitant]
  2. FEMARA [Suspect]
     Dosage: 2.5 MG, QD
     Route: 048
     Dates: start: 20040801

REACTIONS (2)
  - DIARRHOEA [None]
  - DIVERTICULUM [None]
